FAERS Safety Report 17479753 (Version 1)
Quarter: 2020Q1

REPORT INFORMATION
  Report Type: Spontaneous
  Country: GB (occurrence: GB)
  Receive Date: 20200228
  Receipt Date: 20200228
  Transmission Date: 20200409
  Serious: Yes (Hospitalization, Disabling, Other)
  Sender: FDA-Public Use
  Company Number: GB-PFIZER INC-2020085907

PATIENT
  Age: 46 Year
  Sex: Male
  Weight: 203 kg

DRUGS (3)
  1. RAMIPRIL. [Concomitant]
     Active Substance: RAMIPRIL
  2. ATORVASTATIN [Concomitant]
     Active Substance: ATORVASTATIN
  3. AMLODIPINE BESILATE [Suspect]
     Active Substance: AMLODIPINE BESYLATE
     Indication: HYPERTENSION
     Dosage: 10 MG, UNK
     Route: 048
     Dates: start: 20191010, end: 20200201

REACTIONS (7)
  - Rash macular [Unknown]
  - Rash vesicular [Unknown]
  - Peripheral swelling [Unknown]
  - Cellulitis [Unknown]
  - Vasculitis [Not Recovered/Not Resolved]
  - Pain in extremity [Unknown]
  - Skin weeping [Unknown]

NARRATIVE: CASE EVENT DATE: 20200123
